FAERS Safety Report 14407285 (Version 2)
Quarter: 2018Q1

REPORT INFORMATION
  Report Type: Spontaneous
  Country: AU (occurrence: AU)
  Receive Date: 20180118
  Receipt Date: 20180327
  Transmission Date: 20180509
  Serious: Yes (Hospitalization)
  Sender: FDA-Public Use
  Company Number: AU-SA-2018SA007060

PATIENT
  Age: 48 Year
  Sex: Female

DRUGS (2)
  1. CLEXANE [Suspect]
     Active Substance: ENOXAPARIN SODIUM
     Indication: THROMBOSIS
     Dosage: IN THE MORNING
     Route: 051
  2. THYROXIN [Concomitant]
     Active Substance: LEVOTHYROXINE

REACTIONS (5)
  - Dysgeusia [Unknown]
  - Throat tightness [Unknown]
  - Chest discomfort [Unknown]
  - Burning sensation [Unknown]
  - Injection site bruising [Unknown]
